FAERS Safety Report 8792248 (Version 1)
Quarter: 2012Q4

REPORT INFORMATION
  Report Type: 
  Country: CH (occurrence: CH)
  Receive Date: 20120918
  Receipt Date: 20120918
  Transmission Date: 20130627
  Serious: Yes (Hospitalization, Other)
  Sender: FDA-Public Use
  Company Number: CH-RANBAXY-2012R1-59935

PATIENT
  Age: 16 Year
  Sex: Male

DRUGS (1)
  1. ISOTRETINOIN [Suspect]
     Indication: ACNE
     Dosage: 40 mg/day
     Route: 065

REACTIONS (1)
  - Henoch-Schonlein purpura [Recovered/Resolved]
